FAERS Safety Report 15814417 (Version 1)
Quarter: 2019Q1

REPORT INFORMATION
  Report Type: Report from Study
  Country: US (occurrence: US)
  Receive Date: 20190111
  Receipt Date: 20190111
  Transmission Date: 20190417
  Serious: Yes (Death, Other)
  Sender: FDA-Public Use
  Company Number: US-PFIZER INC-2018358581

PATIENT
  Age: 65 Year
  Sex: Female

DRUGS (2)
  1. IBRANCE [Suspect]
     Active Substance: PALBOCICLIB
     Dosage: 75 MG, CYCLIC (DAILY/21 DAYS ON AND 7 DAYS OFF)
     Route: 048
     Dates: start: 20180925
  2. IBRANCE [Suspect]
     Active Substance: PALBOCICLIB
     Indication: BREAST CANCER
     Dosage: 125 MG, 21 DAYS ON/7 DAYS OFF
     Route: 048
     Dates: start: 20180829, end: 2018

REACTIONS (12)
  - White blood cell count decreased [Not Recovered/Not Resolved]
  - Pyrexia [Unknown]
  - Nausea [Recovering/Resolving]
  - Asthenia [Unknown]
  - Joint swelling [Unknown]
  - Diarrhoea [Recovering/Resolving]
  - Headache [Not Recovered/Not Resolved]
  - Arthralgia [Unknown]
  - Death [Fatal]
  - Fatigue [Not Recovered/Not Resolved]
  - Insomnia [Unknown]
  - Anaemia [Unknown]

NARRATIVE: CASE EVENT DATE: 2018
